FAERS Safety Report 24987235 (Version 1)
Quarter: 2025Q1

REPORT INFORMATION
  Report Type: Spontaneous
  Country: ES (occurrence: ES)
  Receive Date: 20250219
  Receipt Date: 20250219
  Transmission Date: 20250409
  Serious: Yes (Life-Threatening, Hospitalization)
  Sender: TEVA
  Company Number: None

PATIENT
  Age: 29 Year
  Sex: Male

DRUGS (3)
  1. IBUPROFEN [Suspect]
     Active Substance: IBUPROFEN
     Indication: Tonsillitis
     Route: 048
     Dates: start: 20241219, end: 20241219
  2. OTILONIUM BROMIDE [Suspect]
     Active Substance: OTILONIUM BROMIDE
     Indication: Dyspepsia
     Route: 048
     Dates: start: 20241219, end: 20241219
  3. AMOXICILLIN\CLAVULANIC ACID [Suspect]
     Active Substance: AMOXICILLIN\CLAVULANIC ACID
     Indication: Tonsillitis
     Route: 048
     Dates: start: 20241219, end: 20241219

REACTIONS (1)
  - Anaphylactic reaction [Recovered/Resolved]

NARRATIVE: CASE EVENT DATE: 20241219
